FAERS Safety Report 7340763-9 (Version None)
Quarter: 2011Q1

REPORT INFORMATION
  Report Type: 
  Country: None (occurrence: None)
  Receive Date: 20110225
  Receipt Date: 20110210
  Transmission Date: 20110831
  Serious: Yes (Other)
  Sender: FDA-Public Use
  Company Number: 2011P1004153

PATIENT
  Age: 41 Year
  Weight: 90.2658 kg

DRUGS (1)
  1. PHENYTOIN SODIUM [Suspect]
     Indication: POST-TRAUMATIC EPILEPSY
     Dosage: 300 MG; HS; PO
     Route: 048
     Dates: start: 20110104

REACTIONS (2)
  - ANTICONVULSANT DRUG LEVEL INCREASED [None]
  - PRODUCT SUBSTITUTION ISSUE [None]
